FAERS Safety Report 9303448 (Version 1)
Quarter: 2013Q2

REPORT INFORMATION
  Report Type: Not Available
  Country: GB (occurrence: GB)
  Receive Date: 20130516
  Receipt Date: 20130516
  Transmission Date: 20140414
  Serious: Yes (Hospitalization, Other)
  Sender: FDA-Public Use
  Company Number: GB-DEXPHARM-20130182

PATIENT
  Age: 63 Year
  Sex: Female

DRUGS (1)
  1. OMEPRAZOLE [Suspect]
     Route: 048

REACTIONS (14)
  - Fall [None]
  - Mobility decreased [None]
  - Eye haemorrhage [None]
  - Weight decreased [None]
  - Photosensitivity reaction [None]
  - Retinopathy [None]
  - Pain [None]
  - Paraesthesia [None]
  - Burning sensation [None]
  - Feeling hot [None]
  - Alopecia [None]
  - Decreased appetite [None]
  - Syncope [None]
  - Screaming [None]
